FAERS Safety Report 4382864-3 (Version None)
Quarter: 2004Q2

REPORT INFORMATION
  Report Type: 
  Country: None (occurrence: None)
  Receive Date: 20040617
  Receipt Date: 20010919
  Transmission Date: 20050107
  Serious: Yes (Hospitalization, Other)
  Sender: FDA-Public Use
  Company Number: KII-2001-0011197

PATIENT
  Sex: Male

DRUGS (1)
  1. OXYCONTIN [Suspect]
     Dosage: SEE IMAGE

REACTIONS (2)
  - ASPIRATION [None]
  - MEDICATION ERROR [None]
